FAERS Safety Report 6575462-4 (Version None)
Quarter: 2010Q1

REPORT INFORMATION
  Report Type: 
  Country: None (occurrence: None)
  Receive Date: 20100208
  Receipt Date: 20100208
  Transmission Date: 20100710
  Serious: No
  Sender: FDA-Public Use
  Company Number: None

PATIENT
  Age: 63 Year
  Sex: Male
  Weight: 81.6475 kg

DRUGS (1)
  1. AZASITE [Suspect]
     Indication: EYE INFECTION BACTERIAL
     Dosage: ONE DROP TWICE DAILY OPHTHALMIC (ONLY USED ONCE)
     Route: 047
     Dates: start: 20100203, end: 20100203

REACTIONS (5)
  - APPLICATION SITE IRRITATION [None]
  - APPLICATION SITE PAIN [None]
  - DRY EYE [None]
  - EYELID OEDEMA [None]
  - VISION BLURRED [None]
